FAERS Safety Report 4557304-1 (Version None)
Quarter: 2005Q1

REPORT INFORMATION
  Report Type: 
  Country: None (occurrence: None)
  Receive Date: 20050118
  Receipt Date: 20050106
  Transmission Date: 20050727
  Serious: Yes (Other)
  Sender: FDA-Public Use
  Company Number: 200510083BCC

PATIENT
  Age: 53 Year
  Sex: Female
  Weight: 74.8435 kg

DRUGS (6)
  1. ALEVE [Suspect]
     Indication: NERVE INJURY
     Dosage: 440 MG, QD, ORAL
     Route: 048
  2. ALEVE [Suspect]
  3. ALEVE [Suspect]
  4. ZITHROMAX [Concomitant]
  5. PREVACID [Concomitant]
  6. ALEVE [Suspect]

REACTIONS (3)
  - BLOOD PRESSURE INCREASED [None]
  - MULTIPLE ALLERGIES [None]
  - SWELLING FACE [None]
